FAERS Safety Report 7960458-8 (Version None)
Quarter: 2011Q4

REPORT INFORMATION
  Report Type: 
  Country: None (occurrence: None)
  Receive Date: 20111206
  Receipt Date: 20111129
  Transmission Date: 20120403
  Serious: Yes (Hospitalization)
  Sender: FDA-Public Use
  Company Number: US-CELGENEUS-163-21880-11091916

PATIENT
  Sex: Female

DRUGS (4)
  1. REVLIMID [Suspect]
     Indication: MULTIPLE MYELOMA
     Dosage: 10 MILLIGRAM
     Route: 048
     Dates: start: 20060101
  2. REVLIMID [Suspect]
     Dosage: 5 MILLIGRAM
     Route: 048
     Dates: start: 20100901, end: 20110816
  3. REVLIMID [Suspect]
     Dosage: 15 MILLIGRAM
     Route: 048
  4. CALCIUM [Concomitant]
     Route: 065

REACTIONS (2)
  - FULL BLOOD COUNT DECREASED [None]
  - HYPERCALCAEMIA [None]
